FAERS Safety Report 5865206-3 (Version None)
Quarter: 2008Q3

REPORT INFORMATION
  Report Type: 
  Country: None (occurrence: None)
  Receive Date: 20080829
  Receipt Date: 20080826
  Transmission Date: 20090109
  Serious: Yes (Hospitalization)
  Sender: FDA-Public Use
  Company Number: B0530676A

PATIENT
  Age: 78 Year
  Sex: Female

DRUGS (5)
  1. VALTREX [Suspect]
     Indication: HERPES ZOSTER
     Dosage: 1000MG THREE TIMES PER DAY
     Route: 048
     Dates: start: 20080713, end: 20080713
  2. OLMETEC [Concomitant]
     Indication: DRUG USE FOR UNKNOWN INDICATION
     Route: 048
     Dates: end: 20080713
  3. MUCOSTA [Concomitant]
     Indication: DRUG USE FOR UNKNOWN INDICATION
     Dosage: 300MG PER DAY
     Route: 048
     Dates: start: 20080714
  4. PURSENNID [Concomitant]
     Indication: DRUG USE FOR UNKNOWN INDICATION
     Route: 048
  5. ARASENA-A [Concomitant]
     Indication: HERPES ZOSTER
     Route: 061
     Dates: start: 20080713, end: 20080729

REACTIONS (3)
  - MALAISE [None]
  - PYREXIA [None]
  - RENAL FAILURE ACUTE [None]
